APPROVED DRUG PRODUCT: METFORMIN HYDROCHLORIDE
Active Ingredient: METFORMIN HYDROCHLORIDE
Strength: 1GM
Dosage Form/Route: TABLET;ORAL
Application: A203686 | Product #003 | TE Code: AB
Applicant: ZYDUS HEALTHCARE USA LLC
Approved: Aug 28, 2014 | RLD: No | RS: No | Type: RX